FAERS Safety Report 19398724 (Version 1)
Quarter: 2021Q2

REPORT INFORMATION
  Report Type: Spontaneous
  Country: CA (occurrence: CA)
  Receive Date: 20210610
  Receipt Date: 20210610
  Transmission Date: 20210717
  Serious: Yes (Other)
  Sender: FDA-Public Use
  Company Number: CA-CELLTRION INC.-2021CA006353

PATIENT

DRUGS (7)
  1. INFLECTRA [Suspect]
     Active Substance: INFLIXIMAB-DYYB
     Indication: CROHN^S DISEASE
     Dosage: 400 MG, Q 0 WEEK DOSE
     Route: 042
     Dates: start: 20200610, end: 20200610
  2. INFLECTRA [Suspect]
     Active Substance: INFLIXIMAB-DYYB
     Dosage: 400 MG, Q 2 WEEK DOSE
     Route: 042
     Dates: start: 20200626, end: 20200626
  3. INFLECTRA [Suspect]
     Active Substance: INFLIXIMAB-DYYB
     Dosage: 5 MG/KG, EVERY 6 WEEKS (ROUND UP TO NEAREST HUNDRED)
     Route: 042
     Dates: start: 20201026
  4. INFLECTRA [Suspect]
     Active Substance: INFLIXIMAB-DYYB
     Dosage: 5 MG/KG, EVERY 6 WEEKS (ROUND UP TO NEAREST HUNDRED)
     Route: 042
     Dates: start: 20210414
  5. INFLECTRA [Suspect]
     Active Substance: INFLIXIMAB-DYYB
     Dosage: 400 MG, Q 6 WEEK DOSE
     Route: 042
     Dates: start: 20200724, end: 20200724
  6. INFLECTRA [Suspect]
     Active Substance: INFLIXIMAB-DYYB
     Dosage: 5 MG/KG, Q 0 WEEK DOSE (RE?INDUCTION)DOSE ROUNDED TO NEAREST VIAL
     Route: 042
     Dates: start: 20200915, end: 20200915
  7. INFLECTRA [Suspect]
     Active Substance: INFLIXIMAB-DYYB
     Dosage: 5 MG/KG, EVERY 6 WEEKS (ROUND UP TO NEAREST HUNDRED)
     Route: 042
     Dates: start: 20210526

REACTIONS (4)
  - Off label use [Unknown]
  - Condition aggravated [Unknown]
  - Abortion spontaneous [Recovered/Resolved]
  - Off label use [Unknown]

NARRATIVE: CASE EVENT DATE: 20200610
